FAERS Safety Report 9343611 (Version 3)
Quarter: 2013Q4

REPORT INFORMATION
  Report Type: Spontaneous
  Country: GR (occurrence: GR)
  Receive Date: 20130612
  Receipt Date: 20131112
  Transmission Date: 20140711
  Serious: Yes (Life-Threatening, Hospitalization, Other)
  Sender: FDA-Public Use
  Company Number: GR-SHIRE-ALL1-2013-03725

PATIENT
  Age: 39 Year
  Sex: Male
  Weight: 107 kg

DRUGS (1)
  1. FIRAZYR [Suspect]
     Indication: HEREDITARY ANGIOEDEMA
     Dosage: 30 MG, AS REQ^D
     Route: 058
     Dates: start: 20130525

REACTIONS (2)
  - Acute myocardial infarction [Recovered/Resolved]
  - Coronary artery stenosis [Unknown]
